FAERS Safety Report 4598273-8 (Version None)
Quarter: 2005Q2

REPORT INFORMATION
  Report Type: 
  Country: None (occurrence: None)
  Receive Date: 20050204
  Receipt Date: 20040517
  Transmission Date: 20051028
  Serious: Yes (Other)
  Sender: FDA-Public Use
  Company Number: PHEH2004US05437

PATIENT
  Age: 15 Year
  Sex: Female

DRUGS (7)
  1. CLOZARIL [Suspect]
     Indication: SCHIZOAFFECTIVE DISORDER
     Dosage: 100 MG, TID ;  75MG BID+100MG, HS   :   ORAL
     Route: 048
     Dates: start: 20030915, end: 20040408
  2. CLOZARIL [Suspect]
     Indication: SCHIZOAFFECTIVE DISORDER
     Dosage: 100 MG, TID ;  75MG BID+100MG, HS   :   ORAL
     Route: 048
     Dates: start: 20040409, end: 20040421
  3. GEODON [Suspect]
     Dosage: 60 MG ; 40 MG
  4. KLONOPIN [Concomitant]
  5. LITHOBID [Concomitant]
  6. COGENTIN [Concomitant]
  7. LEXAPRO [Concomitant]

REACTIONS (4)
  - CONVULSION [None]
  - FEELING ABNORMAL [None]
  - SEDATION [None]
  - SOMNOLENCE [None]
